FAERS Safety Report 23783837 (Version 3)
Quarter: 2025Q1

REPORT INFORMATION
  Report Type: Report from Study
  Country: BR (occurrence: BR)
  Receive Date: 20240425
  Receipt Date: 20250115
  Transmission Date: 20250408
  Serious: Yes (Other)
  Sender: NOVARTIS
  Company Number: BR-002147023-NVSC2023BR214865

PATIENT
  Sex: Female

DRUGS (9)
  1. KISQALI [Suspect]
     Active Substance: RIBOCICLIB
     Indication: Breast cancer
     Dosage: 3 DOSAGE FORM, QD
     Route: 065
     Dates: start: 2022
  2. KISQALI [Suspect]
     Active Substance: RIBOCICLIB
     Dosage: 2 DOSAGE FORM, QD
     Route: 065
     Dates: start: 20230927
  3. KISQALI [Suspect]
     Active Substance: RIBOCICLIB
     Dosage: 1 DOSAGE FORM, QD
     Route: 065
  4. KISQALI [Suspect]
     Active Substance: RIBOCICLIB
     Dosage: 200 MG, QD (3 TABLETS)
     Route: 065
  5. KISQALI [Suspect]
     Active Substance: RIBOCICLIB
     Dosage: 200 MG, QD (1 TABLET)
     Route: 065
     Dates: end: 20240822
  6. KISQALI [Suspect]
     Active Substance: RIBOCICLIB
     Dosage: 1 DOSAGE FORM, QD
     Route: 065
     Dates: start: 20250104
  7. ZOMETA [Suspect]
     Active Substance: ZOLEDRONIC ACID
     Indication: Product used for unknown indication
     Route: 065
  8. ANASTROZOLE [Concomitant]
     Active Substance: ANASTROZOLE
     Indication: Product used for unknown indication
     Route: 065
  9. FULVESTRANT [Concomitant]
     Active Substance: FULVESTRANT
     Indication: Product used for unknown indication
     Route: 065

REACTIONS (38)
  - Hepatitis [Recovered/Resolved]
  - Hallucination [Recovered/Resolved]
  - Liver injury [Unknown]
  - Malaise [Recovered/Resolved]
  - Pain [Unknown]
  - Decreased immune responsiveness [Unknown]
  - Headache [Recovered/Resolved]
  - Pain [Recovered/Resolved]
  - Dizziness [Recovered/Resolved]
  - Nausea [Recovering/Resolving]
  - Pruritus [Recovered/Resolved]
  - Skin disorder [Unknown]
  - Skin exfoliation [Unknown]
  - Wound [Unknown]
  - Pyrexia [Unknown]
  - Gastrooesophageal reflux disease [Unknown]
  - Asthenia [Unknown]
  - Depressed mood [Unknown]
  - Bone disorder [Unknown]
  - Alanine aminotransferase increased [Recovered/Resolved]
  - Aspartate aminotransferase increased [Recovered/Resolved]
  - Retching [Recovered/Resolved]
  - Pain of skin [Recovered/Resolved]
  - Bone lesion [Recovering/Resolving]
  - Osteoporosis [Recovering/Resolving]
  - Bone pain [Recovering/Resolving]
  - Pain in extremity [Recovering/Resolving]
  - Pelvic pain [Recovering/Resolving]
  - Back pain [Recovering/Resolving]
  - Breast mass [Unknown]
  - Decreased appetite [Recovered/Resolved]
  - Nightmare [Recovered/Resolved]
  - Head discomfort [Recovering/Resolving]
  - Pruritus [Unknown]
  - Rash macular [Unknown]
  - Petechiae [Unknown]
  - Pigmentation disorder [Recovered/Resolved]
  - Injury [Recovered/Resolved]

NARRATIVE: CASE EVENT DATE: 20230101
